FAERS Safety Report 7457320-6 (Version None)
Quarter: 2011Q2

REPORT INFORMATION
  Report Type: 
  Country: None (occurrence: None)
  Receive Date: 20110504
  Receipt Date: 20100430
  Transmission Date: 20111010
  Serious: No
  Sender: FDA-Public Use
  Company Number: US-KINGPHARMUSA00001-K201000529

PATIENT
  Age: 61 Year
  Sex: Male
  Weight: 122.45 kg

DRUGS (4)
  1. AVINZA [Suspect]
     Indication: ARTHRITIS
  2. TYLENOL-500 [Concomitant]
     Indication: PAIN
     Dosage: UNK
  3. ASPIRIN [Concomitant]
     Indication: PAIN
     Dosage: UNK
  4. AVINZA [Suspect]
     Indication: BACK PAIN
     Dosage: 30 MG, QD
     Dates: start: 20100426, end: 20100429

REACTIONS (2)
  - DRUG INEFFECTIVE [None]
  - CONSTIPATION [None]
